FAERS Safety Report 6675562-4 (Version None)
Quarter: 2010Q2

REPORT INFORMATION
  Report Type: 
  Country: None (occurrence: None)
  Receive Date: 20100409
  Receipt Date: 20100329
  Transmission Date: 20101027
  Serious: Yes (Hospitalization, Other)
  Sender: FDA-Public Use
  Company Number: PHEH2007US15651

PATIENT
  Sex: Female

DRUGS (38)
  1. ZOMETA [Suspect]
     Dosage: UNK
     Route: 042
  2. REMICADE [Concomitant]
  3. MEGACE [Concomitant]
  4. CHEMOTHERAPEUTICS NOS [Concomitant]
  5. PERIDEX [Concomitant]
  6. KENALOG [Concomitant]
  7. PLAQUENIL [Concomitant]
  8. FOLIC ACID [Concomitant]
  9. VITAMIN B6 [Concomitant]
  10. CENTRUM [Concomitant]
  11. ASPIRIN [Concomitant]
  12. ABRAXANE [Concomitant]
  13. METOPROLOL TARTRATE [Concomitant]
  14. TAMOXIFEN CITRATE [Concomitant]
  15. PREDNISONE [Concomitant]
  16. ZANTAC [Concomitant]
  17. FEMARA [Concomitant]
  18. CELEBREX [Concomitant]
  19. PAXIL [Concomitant]
  20. METHOTREXATE [Concomitant]
  21. FASLODEX [Concomitant]
  22. DOXIL [Concomitant]
  23. NEULASTA [Concomitant]
  24. XELODA [Concomitant]
  25. HALOTESTIN [Concomitant]
  26. TAXOTERE [Concomitant]
  27. TUBERCULIN NOS [Concomitant]
  28. METROGEL [Concomitant]
  29. CALCIUM [Concomitant]
  30. VITAMIN D [Concomitant]
  31. CENTRUM SILVER [Concomitant]
  32. ZOFRAN [Concomitant]
     Dosage: 4 MG, PRN
     Route: 048
  33. LOPRESSOR [Concomitant]
     Dosage: UNK
     Route: 048
  34. ROCEPHIN [Concomitant]
     Dosage: 1 G, UNK
  35. FLAGYL [Concomitant]
     Dosage: UNK
  36. ZYVOX [Concomitant]
  37. NAVELBINE [Concomitant]
     Dosage: UNK
  38. AROMASIN [Concomitant]
     Dosage: UNK

REACTIONS (50)
  - ANAEMIA [None]
  - ANXIETY [None]
  - APPENDICECTOMY [None]
  - APPENDICITIS [None]
  - APPENDICITIS PERFORATED [None]
  - ATRIAL FIBRILLATION [None]
  - BACK PAIN [None]
  - BONE DEBRIDEMENT [None]
  - BONE DISORDER [None]
  - BREAST PROSTHESIS USER [None]
  - CARDIAC FAILURE CONGESTIVE [None]
  - CHRONIC OBSTRUCTIVE PULMONARY DISEASE [None]
  - DECREASED APPETITE [None]
  - DEFORMITY [None]
  - DEHYDRATION [None]
  - DERMAL CYST [None]
  - DIARRHOEA [None]
  - DYSURIA [None]
  - EMOTIONAL DISTRESS [None]
  - FATIGUE [None]
  - GAIT DISTURBANCE [None]
  - HEPATIC NEOPLASM MALIGNANT [None]
  - HORDEOLUM [None]
  - HYPERKALAEMIA [None]
  - INFECTION [None]
  - KYPHOSIS [None]
  - LESION EXCISION [None]
  - METASTASES TO BONE [None]
  - METASTASES TO SPINE [None]
  - MYELODYSPLASTIC SYNDROME [None]
  - NAUSEA [None]
  - NEPHROLITHIASIS [None]
  - NODAL OSTEOARTHRITIS [None]
  - OSTEOMYELITIS [None]
  - OSTEONECROSIS [None]
  - PAIN [None]
  - PELVI-URETERIC OBSTRUCTION [None]
  - PHYSICAL DISABILITY [None]
  - PLEURAL EFFUSION [None]
  - PNEUMONIA [None]
  - PULMONARY MASS [None]
  - RENAL FAILURE [None]
  - SEPSIS [None]
  - SPINAL COLUMN STENOSIS [None]
  - SPINAL COMPRESSION FRACTURE [None]
  - THROMBOCYTOPENIA [None]
  - TONGUE ULCERATION [None]
  - URINARY TRACT INFECTION ENTEROCOCCAL [None]
  - VERTEBROPLASTY [None]
  - WALKING AID USER [None]
